FAERS Safety Report 24765471 (Version 1)
Quarter: 2024Q4

REPORT INFORMATION
  Report Type: Spontaneous
  Country: FR (occurrence: FR)
  Receive Date: 20241223
  Receipt Date: 20241223
  Transmission Date: 20250114
  Serious: Yes (Other)
  Sender: BAYER HEALTHCARE PHARMACEUTICALS INC.
  Company Number: None

PATIENT
  Age: 42 Year
  Sex: Female

DRUGS (2)
  1. STIVARGA [Suspect]
     Active Substance: REGORAFENIB MONOHYDRATE
     Indication: Adenocarcinoma gastric
     Dosage: 160 MG, QD
     Route: 048
     Dates: start: 20190820
  2. AVELUMAB [Suspect]
     Active Substance: AVELUMAB
     Indication: Adenocarcinoma gastric
     Dosage: 584 MG, QD, 10 MG/KG DAY 1 DAY 15
     Route: 042
     Dates: start: 20190902

REACTIONS (1)
  - Panniculitis [Not Recovered/Not Resolved]

NARRATIVE: CASE EVENT DATE: 20240101
